FAERS Safety Report 16915591 (Version 1)
Quarter: 2019Q4

REPORT INFORMATION
  Report Type: Spontaneous
  Country: US (occurrence: US)
  Receive Date: 20191013
  Receipt Date: 20191013
  Transmission Date: 20200122
  Serious: Yes (Disabling, Other)
  Sender: FDA-Public Use
  Company Number: None

PATIENT
  Age: 54 Year
  Sex: Male
  Weight: 66.15 kg

DRUGS (5)
  1. METFORMIN [Concomitant]
     Active Substance: METFORMIN HYDROCHLORIDE
  2. HEPARIN [Suspect]
     Active Substance: HEPARIN SODIUM
     Indication: PRODUCT USED FOR UNKNOWN INDICATION
     Route: 042
  3. ELIQUIS [Concomitant]
     Active Substance: APIXABAN
  4. VITAMINS [Concomitant]
     Active Substance: VITAMINS
  5. METORPOLO [Concomitant]

REACTIONS (2)
  - Foot amputation [None]
  - Dry gangrene [None]

NARRATIVE: CASE EVENT DATE: 20190904
